FAERS Safety Report 9706541 (Version 1)
Quarter: 2013Q4

REPORT INFORMATION
  Report Type: Other
  Country: JP (occurrence: JP)
  Receive Date: 20131125
  Receipt Date: 20131125
  Transmission Date: 20140711
  Serious: Yes (Other)
  Sender: FDA-Public Use
  Company Number: JP-BRISTOL-MYERS SQUIBB COMPANY-19849066

PATIENT
  Age: 40 Year
  Sex: Male

DRUGS (2)
  1. KENACORT-A INJ [Suspect]
     Indication: MACULAR OEDEMA
     Dosage: SUBCAPSULAR INJECTION
  2. KENACORT-A INJ [Suspect]
     Indication: DETACHMENT OF RETINAL PIGMENT EPITHELIUM
     Dosage: SUBCAPSULAR INJECTION

REACTIONS (1)
  - Retinal detachment [Not Recovered/Not Resolved]
